FAERS Safety Report 20650755 (Version 1)
Quarter: 2022Q1

REPORT INFORMATION
  Report Type: Spontaneous
  Country: US (occurrence: US)
  Receive Date: 20220329
  Receipt Date: 20220329
  Transmission Date: 20220424
  Serious: No
  Sender: FDA-Public Use
  Company Number: US-SEATTLE GENETICS-2021SGN04501

PATIENT
  Age: 50 Year
  Sex: Male

DRUGS (4)
  1. ADCETRIS [Suspect]
     Active Substance: BRENTUXIMAB VEDOTIN
     Indication: Hodgkin^s disease
     Dosage: UNK
     Dates: start: 2018
  2. ADCETRIS [Suspect]
     Active Substance: BRENTUXIMAB VEDOTIN
     Dosage: 1.8 MG/KG
     Dates: start: 20210218, end: 20210513
  3. NIVOLUMAB [Concomitant]
     Active Substance: NIVOLUMAB
  4. BENDAMUSTINE [Concomitant]
     Active Substance: BENDAMUSTINE

REACTIONS (2)
  - Product dose omission issue [Unknown]
  - Product use in unapproved indication [Unknown]
